FAERS Safety Report 7519660-1 (Version None)
Quarter: 2011Q2

REPORT INFORMATION
  Report Type: 
  Country: None (occurrence: None)
  Receive Date: 20110602
  Receipt Date: 20110524
  Transmission Date: 20111010
  Serious: Yes (Other)
  Sender: FDA-Public Use
  Company Number: B0722008A

PATIENT
  Age: 8 Decade
  Sex: Female

DRUGS (2)
  1. ALLEGRA [Concomitant]
     Route: 048
  2. SERETIDE (50MCG/250MCG) [Suspect]
     Indication: PRODUCT USED FOR UNKNOWN INDICATION
     Dosage: 500MCG PER DAY
     Route: 055

REACTIONS (1)
  - VIITH NERVE PARALYSIS [None]
